FAERS Safety Report 9449085 (Version 1)
Quarter: 2013Q3

REPORT INFORMATION
  Report Type: Spontaneous
  Country: CO (occurrence: CO)
  Receive Date: 20130808
  Receipt Date: 20130808
  Transmission Date: 20140515
  Serious: Yes (Hospitalization, Other)
  Sender: FDA-Public Use
  Company Number: CO-009507513-1308COL003608

PATIENT
  Age: 58 Year
  Sex: Male

DRUGS (3)
  1. PEG-INTRON [Suspect]
     Indication: HEPATITIS C
     Dosage: REDIPEN
     Route: 058
     Dates: start: 20130614, end: 20130729
  2. REBETOL [Suspect]
     Indication: HEPATITIS C
     Dosage: UNK, QD
     Route: 048
     Dates: start: 20130614, end: 20130729
  3. VICTRELIS [Suspect]
     Indication: HEPATITIS C
     Dosage: UNK, QD
     Route: 048
     Dates: end: 20130729

REACTIONS (4)
  - Coma [Not Recovered/Not Resolved]
  - Somnolence [Not Recovered/Not Resolved]
  - Confusional state [Not Recovered/Not Resolved]
  - Disorientation [Not Recovered/Not Resolved]
